FAERS Safety Report 4451091-3 (Version None)
Quarter: 2004Q3

REPORT INFORMATION
  Report Type: 
  Country: None (occurrence: None)
  Receive Date: 20040916
  Receipt Date: 20040907
  Transmission Date: 20050211
  Serious: Yes (Hospitalization)
  Sender: FDA-Public Use
  Company Number: JP-JNJFOC-20040201178

PATIENT
  Sex: Female
  Weight: 51 kg

DRUGS (13)
  1. REMICADE [Suspect]
     Route: 041
  2. REMICADE [Suspect]
     Route: 041
  3. REMICADE [Suspect]
     Indication: RHEUMATOID ARTHRITIS
     Route: 041
  4. PREDNISOLONE [Concomitant]
     Indication: RHEUMATOID ARTHRITIS
     Route: 049
     Dates: start: 20030925
  5. RHEUMATREX [Concomitant]
     Route: 049
     Dates: start: 20011212
  6. RHEUMATREX [Concomitant]
     Route: 049
     Dates: start: 20011212
  7. RHEUMATREX [Concomitant]
     Indication: RHEUMATOID ARTHRITIS
     Route: 049
     Dates: start: 20011212
  8. AZULFIDINE [Concomitant]
     Indication: RHEUMATOID ARTHRITIS
     Route: 049
     Dates: start: 20030925
  9. INFREE [Concomitant]
     Indication: RHEUMATOID ARTHRITIS
     Route: 049
     Dates: start: 20030925
  10. FOLIAMIN [Concomitant]
     Route: 049
     Dates: start: 20030925, end: 20040107
  11. ALFAROL [Concomitant]
     Route: 049
     Dates: start: 20030925
  12. ASPARA-CA [Concomitant]
     Route: 049
     Dates: start: 20030925
  13. GASTROM [Concomitant]
     Route: 049
     Dates: start: 20030925

REACTIONS (8)
  - ALANINE AMINOTRANSFERASE INCREASED [None]
  - ASPARTATE AMINOTRANSFERASE INCREASED [None]
  - BLOOD LACTATE DEHYDROGENASE INCREASED [None]
  - LIVER DISORDER [None]
  - LUNG NEOPLASM [None]
  - MYCOBACTERIUM AVIUM COMPLEX INFECTION [None]
  - PLATELET COUNT DECREASED [None]
  - TUBERCULOSIS [None]
